FAERS Safety Report 19620833 (Version 1)
Quarter: 2021Q3

REPORT INFORMATION
  Report Type: Report from Study
  Country: BR (occurrence: BR)
  Receive Date: 20210728
  Receipt Date: 20210728
  Transmission Date: 20211014
  Serious: Yes (Death, Other)
  Sender: FDA-Public Use
  Company Number: NVSC2021BR167954

PATIENT
  Age: 39 Year
  Sex: Male

DRUGS (4)
  1. DABRAFENIB [Suspect]
     Active Substance: DABRAFENIB
     Indication: SKIN CANCER METASTATIC
     Dosage: UNK
     Route: 065
     Dates: start: 20170920
  2. TRAMETINIB [Suspect]
     Active Substance: TRAMETINIB
     Indication: SKIN CANCER METASTATIC
     Dosage: UNK
     Route: 065
     Dates: start: 20170920
  3. VENLAFAXINE [Concomitant]
     Active Substance: VENLAFAXINE HYDROCHLORIDE
     Indication: DEPRESSION
     Dosage: UNK
     Route: 065
  4. PEMBROLIZUMAB. [Concomitant]
     Active Substance: PEMBROLIZUMAB
     Indication: PRODUCT USED FOR UNKNOWN INDICATION
     Dosage: UNK
     Route: 065
     Dates: start: 201902

REACTIONS (16)
  - Neurological decompensation [Fatal]
  - B-cell lymphoma stage I [Unknown]
  - Partial seizures [Unknown]
  - Metastases to meninges [Unknown]
  - Cerebral haemorrhage [Unknown]
  - Malignant neoplasm progression [Unknown]
  - Skin disorder [Unknown]
  - Paraesthesia [Unknown]
  - Haemorrhage [Unknown]
  - Lymphadenopathy [Unknown]
  - Pyrexia [Unknown]
  - Skin mass [Unknown]
  - Photosensitivity reaction [Unknown]
  - Rash [Unknown]
  - Skin haemorrhage [Recovered/Resolved]
  - Spleen disorder [Unknown]

NARRATIVE: CASE EVENT DATE: 201709
